FAERS Safety Report 8080684-X (Version None)
Quarter: 2012Q1

REPORT INFORMATION
  Report Type: 
  Country: None (occurrence: None)
  Receive Date: 20120130
  Receipt Date: 20120123
  Transmission Date: 20120608
  Serious: Yes (Hospitalization)
  Sender: FDA-Public Use
  Company Number: PHEH2012US002115

PATIENT
  Sex: Female

DRUGS (12)
  1. ALBUTEROL [Concomitant]
  2. PULMOZYME [Concomitant]
  3. TOBI [Suspect]
     Indication: CYSTIC FIBROSIS
     Dosage: 60 MG/ML, BID
     Dates: start: 20100422
  4. CLARINEX                                /DEN/ [Concomitant]
  5. AZITHROMYCIN [Concomitant]
  6. VITAMIN D [Concomitant]
  7. COLISTIMETHATE SODIUM [Concomitant]
     Dosage: UNK
  8. SINGULAIR [Concomitant]
  9. CALCIUM [Concomitant]
     Dosage: UNK
  10. OMEPRAZOLE [Concomitant]
  11. FLUNISOLIDE [Concomitant]
  12. SYMBICORT [Concomitant]

REACTIONS (1)
  - INFECTIVE PULMONARY EXACERBATION OF CYSTIC FIBROSIS [None]
